FAERS Safety Report 9628509 (Version 2)
Quarter: 2014Q1

REPORT INFORMATION
  Report Type: Spontaneous
  Country: US (occurrence: US)
  Receive Date: 20131017
  Receipt Date: 20140110
  Transmission Date: 20141002
  Serious: No
  Sender: FDA-Public Use
  Company Number: US-PFIZER INC-2013296298

PATIENT
  Age: 69 Year
  Sex: Female
  Weight: 81.63 kg

DRUGS (3)
  1. LYRICA [Suspect]
     Indication: DIABETIC NEUROPATHY
     Dosage: 150 MG, 3X/DAY
     Route: 048
     Dates: start: 20080715, end: 201310
  2. LYRICA [Suspect]
     Indication: NEUROPATHY PERIPHERAL
  3. LIPITOR [Concomitant]
     Dosage: 80 MG, DAILY

REACTIONS (2)
  - Pain in extremity [Recovered/Resolved]
  - Pruritus [Recovered/Resolved]
